FAERS Safety Report 21061511 (Version 1)
Quarter: 2022Q3

REPORT INFORMATION
  Report Type: Spontaneous
  Country: ID (occurrence: ID)
  Receive Date: 20220709
  Receipt Date: 20220709
  Transmission Date: 20221027
  Serious: Yes (Other)
  Sender: FDA-Public Use
  Company Number: ID-NOVARTISPH-NVSC2022ID150967

PATIENT
  Age: 50 Year
  Sex: Female

DRUGS (1)
  1. ELTROMBOPAG [Suspect]
     Active Substance: ELTROMBOPAG
     Indication: Systemic lupus erythematosus
     Dosage: 50 MG, CYCLIC (FOR 5 - 6 MONTHS AND 6 ? 7 CYCLES)
     Route: 065

REACTIONS (3)
  - Thrombocytopenia [Recovering/Resolving]
  - Arterial thrombosis [Unknown]
  - Off label use [Recovering/Resolving]
